FAERS Safety Report 17198467 (Version 4)
Quarter: 2020Q1

REPORT INFORMATION
  Report Type: Report from Study
  Country: US (occurrence: US)
  Receive Date: 20191225
  Receipt Date: 20200207
  Transmission Date: 20200409
  Serious: Yes (Other)
  Sender: FDA-Public Use
  Company Number: US-ROCHE-2500971

PATIENT
  Age: 66 Year
  Sex: Female
  Weight: 63.56 kg

DRUGS (16)
  1. ATIVAN [Concomitant]
     Active Substance: LORAZEPAM
     Dosage: ONGOING YES
     Route: 065
  2. ASPIRIN [ACETYLSALICYLIC ACID] [Concomitant]
     Active Substance: ASPIRIN
     Dosage: ONGOING YES
     Route: 065
  3. LYRICA [Concomitant]
     Active Substance: PREGABALIN
     Dosage: ONGOING YES
     Route: 065
  4. MYRBETRIQ [Concomitant]
     Active Substance: MIRABEGRON
     Dosage: ONGOING YES
     Route: 065
  5. LIPITOR [Concomitant]
     Active Substance: ATORVASTATIN CALCIUM
     Dosage: ONGOING YES
     Route: 065
  6. PROTONIX [Concomitant]
     Active Substance: PANTOPRAZOLE SODIUM
     Dosage: ONGOING YES
     Route: 065
  7. CYMBALTA [Concomitant]
     Active Substance: DULOXETINE HYDROCHLORIDE
     Dosage: BACLOFEN
     Route: 065
  8. BACLOFEN. [Concomitant]
     Active Substance: BACLOFEN
     Dosage: ONGOING YES
     Route: 065
  9. HYOSCYAMINE. [Concomitant]
     Active Substance: HYOSCYAMINE
     Dosage: ONGOING YES
     Route: 065
  10. MOBIC [Concomitant]
     Active Substance: MELOXICAM
     Indication: ARTHRITIS
     Dosage: ONGOING YES
     Route: 065
  11. VITAMIN D3 [Concomitant]
     Active Substance: CHOLECALCIFEROL
     Dosage: ONGOING YES?DOSE 5000 (UNIT NOT REPORTED)
     Route: 065
  12. OCREVUS [Suspect]
     Active Substance: OCRELIZUMAB
     Indication: RELAPSING-REMITTING MULTIPLE SCLEROSIS
     Dosage: NEXT DATE OF ADMINISTRATION: 11/DEC/2018?ONGOING YES
     Route: 042
     Dates: start: 20181127
  13. OCREVUS [Suspect]
     Active Substance: OCRELIZUMAB
     Dosage: 15/JAN/2020; ONGOING: NO
     Route: 042
     Dates: start: 20190624
  14. TROSPIUM [Concomitant]
     Active Substance: TROSPIUM
     Dosage: ONGOING YES
     Route: 065
  15. CITRACAL [CALCIUM CITRATE;COLECALCIFEROL] [Concomitant]
     Dosage: ONGOING YES
     Route: 065
  16. LOPRESSOR [Concomitant]
     Active Substance: METOPROLOL TARTRATE
     Indication: MITRAL VALVE PROLAPSE
     Dosage: ONGOING YES
     Route: 065

REACTIONS (15)
  - Meningioma [Not Recovered/Not Resolved]
  - Insomnia [Not Recovered/Not Resolved]
  - Fatigue [Recovered/Resolved]
  - Nausea [Recovered/Resolved]
  - Herpes zoster [Recovering/Resolving]
  - Dizziness [Recovered/Resolved]
  - Somnolence [Recovered/Resolved]
  - Sinusitis bacterial [Recovered/Resolved]
  - Ear infection [Recovering/Resolving]
  - Eye pain [Recovered/Resolved]
  - Neuralgia [Not Recovered/Not Resolved]
  - Headache [Recovered/Resolved]
  - Ear pain [Recovered/Resolved]
  - Skin lesion [Unknown]
  - Nausea [Recovered/Resolved]

NARRATIVE: CASE EVENT DATE: 20181128
